FAERS Safety Report 7588179-4 (Version None)
Quarter: 2011Q3

REPORT INFORMATION
  Report Type: 
  Country: None (occurrence: None)
  Receive Date: 20110705
  Receipt Date: 20110624
  Transmission Date: 20111222
  Serious: Yes (Hospitalization, Other)
  Sender: FDA-Public Use
  Company Number: US-BAYER-201032426NA

PATIENT
  Age: 19 Year
  Sex: Female
  Weight: 52.154 kg

DRUGS (11)
  1. HYDROCODONE BITARTRATE [Concomitant]
  2. MUSCLE RELAXANTS [Concomitant]
     Dosage: UNK
     Dates: start: 20080601
  3. MELOXICAM [Concomitant]
  4. CYCLOBENZAPRINE [Concomitant]
  5. DICLOFENAC SODIUM [Concomitant]
  6. YAZ [Suspect]
     Indication: CONTRACEPTION
     Dosage: UNK
     Route: 048
     Dates: start: 20080325
  7. YASMIN [Suspect]
     Route: 048
  8. COMBIVENT [Concomitant]
     Route: 055
  9. YAZ [Suspect]
     Indication: PREMENSTRUAL SYNDROME
  10. PHENTERMINE [Concomitant]
  11. ADVIL LIQUI-GELS [Concomitant]
     Dosage: UNK UNK, PRN

REACTIONS (11)
  - FLANK PAIN [None]
  - PNEUMONIA [None]
  - CHEST PAIN [None]
  - PRODUCTIVE COUGH [None]
  - THROMBOSIS [None]
  - DYSPNOEA [None]
  - RENAL VEIN THROMBOSIS [None]
  - DYSPNOEA EXERTIONAL [None]
  - PULMONARY THROMBOSIS [None]
  - PULMONARY EMBOLISM [None]
  - DEEP VEIN THROMBOSIS [None]
